FAERS Safety Report 8863285 (Version 1)
Quarter: 2012Q4

REPORT INFORMATION
  Report Type: 
  Country: US (occurrence: US)
  Receive Date: 20121025
  Receipt Date: 20121025
  Transmission Date: 20130627
  Serious: Yes (Hospitalization)
  Sender: FDA-Public Use
  Company Number: US-ROCHE-1103886

PATIENT
  Sex: Male

DRUGS (3)
  1. PEGASYS [Suspect]
     Indication: HEPATITIS C
     Route: 065
     Dates: start: 20120723
  2. RIBAVIRIN [Suspect]
     Indication: HEPATITIS C
     Dosage: Brand- Zygenerics
     Route: 065
     Dates: start: 20120723
  3. BOCEPREVIR [Suspect]
     Indication: HEPATITIS C
     Route: 065
     Dates: start: 20120821

REACTIONS (11)
  - Rectal haemorrhage [Unknown]
  - Platelet count decreased [Unknown]
  - Cardiac infection [Unknown]
  - Pyrexia [Unknown]
  - Cough [Unknown]
  - Eating disorder [Unknown]
  - Epistaxis [Unknown]
  - Headache [Unknown]
  - Epistaxis [Unknown]
  - Mouth haemorrhage [Unknown]
  - Pharyngeal haemorrhage [Unknown]
